FAERS Safety Report 14347216 (Version 1)
Quarter: 2018Q1

REPORT INFORMATION
  Report Type: Spontaneous
  Country: US (occurrence: US)
  Receive Date: 20180102
  Receipt Date: 20180102
  Transmission Date: 20180509
  Serious: Yes (Hospitalization)
  Sender: FDA-Public Use
  Company Number: None

PATIENT
  Sex: Male

DRUGS (9)
  1. CYCLOPHOSPHAMIDE. [Suspect]
     Active Substance: CYCLOPHOSPHAMIDE
     Indication: PLASMA CELL MYELOMA
     Dosage: ?          OTHER FREQUENCY:ONCE WEEKLY;?
     Route: 048
     Dates: start: 20170907
  2. NOCOTINAMIDE POW [Concomitant]
  3. VELCADE [Concomitant]
     Active Substance: BORTEZOMIB
  4. VITAMIN D [Concomitant]
     Active Substance: CHOLECALCIFEROL
  5. FELODIPINE. [Concomitant]
     Active Substance: FELODIPINE
  6. AMLODIPINE [Concomitant]
     Active Substance: AMLODIPINE BESYLATE
  7. MULTIVITAMIN [Concomitant]
     Active Substance: VITAMINS
  8. TACROLIMUS. [Suspect]
     Active Substance: TACROLIMUS
     Indication: PLASMA CELL MYELOMA
     Route: 048
     Dates: start: 20161008
  9. PROPANEDIOL LIQ [Concomitant]

REACTIONS (2)
  - Rash [None]
  - Full blood count decreased [None]
